FAERS Safety Report 7602782-4 (Version None)
Quarter: 2011Q3

REPORT INFORMATION
  Report Type: 
  Country: None (occurrence: None)
  Receive Date: 20110712
  Receipt Date: 20110628
  Transmission Date: 20111222
  Serious: Yes (Hospitalization)
  Sender: FDA-Public Use
  Company Number: CA-JNJFOC-20110700752

PATIENT
  Sex: Male

DRUGS (6)
  1. REMICADE [Suspect]
     Indication: COLITIS ULCERATIVE
     Route: 042
     Dates: start: 20110511
  2. CALCIUM CARBONATE [Concomitant]
  3. ACTONEL [Concomitant]
  4. VITAMIN D [Concomitant]
  5. REMICADE [Suspect]
     Route: 042
     Dates: start: 20081001
  6. PREDNISONE [Concomitant]

REACTIONS (1)
  - PNEUMOTHORAX [None]
